FAERS Safety Report 6086745-9 (Version None)
Quarter: 2009Q1

REPORT INFORMATION
  Report Type: 
  Country: None (occurrence: None)
  Receive Date: 20090217
  Receipt Date: 20090202
  Transmission Date: 20090719
  Serious: Yes (Death)
  Sender: FDA-Public Use
  Company Number: CHPA2009US01688

PATIENT
  Age: 39 Year
  Sex: Female

DRUGS (6)
  1. ACETYLSALICYLIC ACID SRT [Suspect]
     Dosage: UNK UNK ORAL
     Route: 048
  2. AMITRIPTYLINE HYDROCHLORIDE [Suspect]
     Dosage: UNK UNK ORAL
     Route: 048
  3. VALPROIC ACID [Suspect]
     Dosage: UNK UNK ORAL
     Route: 048
  4. ACETAMINOPHEN [Suspect]
     Dosage: UNK UNK ORAL
     Route: 048
  5. TOPIRAMATE [Suspect]
     Dosage: UNK UNK ORAL
     Route: 048
  6. DIAZEPAM [Suspect]
     Dosage: UNK UNK ORAL
     Route: 048

REACTIONS (3)
  - CARDIAC ARREST [None]
  - COMPLETED SUICIDE [None]
  - RESPIRATORY ARREST [None]
